FAERS Safety Report 5113695-4 (Version None)
Quarter: 2006Q3

REPORT INFORMATION
  Report Type: 
  Country: None (occurrence: None)
  Receive Date: 20060925
  Receipt Date: 20060810
  Transmission Date: 20061208
  Serious: Yes (Other)
  Sender: FDA-Public Use
  Company Number: 2006UW15894

PATIENT
  Age: 44 Year
  Sex: Male
  Weight: 73.5 kg

DRUGS (19)
  1. IRESSA [Suspect]
     Indication: METASTATIC NEOPLASM
     Route: 048
     Dates: start: 20060621, end: 20060630
  2. TAXOL [Concomitant]
     Indication: METASTATIC NEOPLASM
     Route: 042
     Dates: end: 20060525
  3. CARBOPLATIN [Concomitant]
     Indication: METASTATIC NEOPLASM
     Route: 042
     Dates: end: 20060525
  4. ETOPOSIDE [Concomitant]
     Indication: METASTATIC NEOPLASM
     Route: 048
     Dates: end: 20060504
  5. OXYCODONE HCL [Concomitant]
  6. CALCIMATE PLUS [Concomitant]
     Dosage: TWO TO FOUR TABLETS A DAY
  7. SELENIUM SULFIDE [Concomitant]
  8. JUICE PLUS GARDEN BLEND [Concomitant]
  9. JUICE PLUS ORCHARD BLEND [Concomitant]
  10. ASCORBIC ACID [Concomitant]
  11. POTASSIUM AND MAGNESIUM ASPARTATE [Concomitant]
  12. MAGNESIUM [Concomitant]
  13. PROLYSIN C [Concomitant]
  14. CHELATED ZINC [Concomitant]
  15. AVE [Concomitant]
  16. L GLUTAMINE POWDER [Concomitant]
  17. POTASSIUM CHLORIDE [Concomitant]
  18. GARDEN OF LIFE [Concomitant]
  19. WHEY PROTEIN [Concomitant]

REACTIONS (4)
  - BLINDNESS TRANSIENT [None]
  - NIGHT SWEATS [None]
  - RETINAL ARTERY OCCLUSION [None]
  - TUMOUR ASSOCIATED FEVER [None]
